FAERS Safety Report 5695018-5 (Version None)
Quarter: 2008Q2

REPORT INFORMATION
  Report Type: 
  Country: None (occurrence: None)
  Receive Date: 20080404
  Receipt Date: 20080328
  Transmission Date: 20081010
  Serious: Yes (Hospitalization)
  Sender: FDA-Public Use
  Company Number: GB-ROCHE-555872

PATIENT
  Sex: Male
  Weight: 120.7 kg

DRUGS (10)
  1. ORLISTAT [Suspect]
     Indication: OBESITY
     Route: 048
     Dates: start: 20071212
  2. BISOPROLOL FUMARATE [Concomitant]
     Indication: HYPERTENSION
     Route: 048
  3. FUROSEMIDE [Concomitant]
     Route: 048
  4. AMIODARONE HCL [Concomitant]
     Route: 048
  5. GLUCOSAMINE [Concomitant]
     Route: 048
  6. RAMIPRIL [Concomitant]
     Indication: BLOOD PRESSURE
     Route: 048
  7. METFORMIN HCL [Concomitant]
     Route: 048
  8. NOVORAPID [Concomitant]
     Route: 048
  9. LANTUS [Concomitant]
     Route: 048
  10. SIMVASTATIN [Concomitant]
     Route: 048

REACTIONS (1)
  - SKIN ULCER [None]
